FAERS Safety Report 10236700 (Version 2)
Quarter: 2014Q3

REPORT INFORMATION
  Report Type: Report from Study
  Country: JP (occurrence: JP)
  Receive Date: 20140613
  Receipt Date: 20140930
  Transmission Date: 20150326
  Serious: No
  Sender: FDA-Public Use
  Company Number: JP-AMGEN-JPNCT2014044327

PATIENT
  Age: 58 Year
  Sex: Male
  Weight: 65 kg

DRUGS (12)
  1. LEXOTAN [Concomitant]
     Active Substance: BROMAZEPAM
     Dosage: 3 DF, QD
     Route: 048
  2. LOXONIN [Concomitant]
     Active Substance: LOXOPROFEN SODIUM
     Dosage: UNK
     Route: 065
  3. NORVASC [Concomitant]
     Active Substance: AMLODIPINE BESYLATE
     Dosage: 2 DF, QD
     Route: 048
  4. CELECOX [Concomitant]
     Active Substance: CELECOXIB
     Dosage: 100 MG, BID, WITHIN 30 MINUTES AFTER BREAKFAST AND DINNER
     Route: 065
  5. OLMETEC [Concomitant]
     Active Substance: OLMESARTAN MEDOXOMIL
     Dosage: 2 DF, QD
     Route: 048
  6. CARDENALIN [Concomitant]
     Active Substance: DOXAZOSIN MESYLATE
     Dosage: 3 DF, QD
     Route: 048
  7. SHAKUYAKUKANZOTO [Concomitant]
     Active Substance: HERBALS
     Dosage: 1 DF, QD
     Route: 048
  8. BONALON [Concomitant]
     Active Substance: ALENDRONATE SODIUM
     Dosage: 5 MG, QD
     Route: 048
     Dates: start: 20121101
  9. LENDORMIN [Concomitant]
     Active Substance: BROTIZOLAM
     Dosage: 1 DF, QD
     Route: 048
  10. DENOSUMAB [Suspect]
     Active Substance: DENOSUMAB
     Indication: OSTEOPOROSIS
     Dosage: 60 MG, UNK
     Route: 058
     Dates: start: 20131112, end: 20131112
  11. SELBEX [Concomitant]
     Active Substance: TEPRENONE
     Dosage: 50 MG, BID, WITHIN 30 MINUTES AFTER BREAKFAST AND DINNER
     Route: 065
  12. EDIROL [Concomitant]
     Active Substance: ELDECALCITOL
     Dosage: 0.5 MUG, QD
     Route: 048
     Dates: start: 20131107

REACTIONS (1)
  - Stomatitis [Recovered/Resolved]

NARRATIVE: CASE EVENT DATE: 201401
